FAERS Safety Report 5178319-9 (Version None)
Quarter: 2006Q4

REPORT INFORMATION
  Report Type: 
  Country: None (occurrence: None)
  Receive Date: 20061208
  Receipt Date: 20061129
  Transmission Date: 20070319
  Serious: Yes (Other)
  Sender: FDA-Public Use
  Company Number: FABR-11733

PATIENT
  Age: 23 Year
  Sex: Male
  Weight: 85 kg

DRUGS (1)
  1. FABRAZYME [Suspect]
     Indication: FABRY'S DISEASE
     Dosage: 1 MG/MK Q2WKS IV
     Route: 042
     Dates: start: 20060704

REACTIONS (3)
  - DYSPHAGIA [None]
  - DYSPNOEA [None]
  - FLUSHING [None]
